FAERS Safety Report 5324717-X (Version None)
Quarter: 2007Q2

REPORT INFORMATION
  Report Type: 
  Country: None (occurrence: None)
  Receive Date: 20070515
  Receipt Date: 20070510
  Transmission Date: 20071010
  Serious: Yes (Death, Life-Threatening, Hospitalization)
  Sender: FDA-Public Use
  Company Number: US-RB-005096-07

PATIENT
  Age: 46 Year
  Sex: Male
  Weight: 88.2 kg

DRUGS (18)
  1. SUBOXONE [Suspect]
     Dosage: PATIENT TOOK 4MG AT 10:30AM AND 4MG AT 1:00PM.
     Route: 060
     Dates: start: 20070204, end: 20070204
  2. WELLBUTRIN SR [Concomitant]
     Indication: DEPRESSION
     Dosage: PATIENT TOOK AT 8AM AND 12 NOON.
     Route: 048
     Dates: end: 20070204
  3. SEROQUEL [Concomitant]
     Dosage: PATIENT TOOK LAST DOSE AT 2AM
     Route: 048
     Dates: end: 20070204
  4. SOMA [Concomitant]
     Indication: BACK PAIN
     Dosage: LAST DOSE AT 9AM
     Route: 048
     Dates: end: 20070204
  5. ZANTAC [Concomitant]
     Indication: DRUG USE FOR UNKNOWN INDICATION
     Route: 048
     Dates: end: 20070204
  6. KLONOPIN [Concomitant]
     Indication: ANXIETY
     Route: 048
     Dates: end: 20070203
  7. KLONOPIN [Concomitant]
     Dosage: PATIENT TOOK 2MG AT 2AM, 1MG AT 8AM AND 1MG AT 1PM.
     Route: 048
     Dates: start: 20070204, end: 20070204
  8. PROPOXYPHENE HYDROCHLORIDE [Concomitant]
     Indication: DRUG USE FOR UNKNOWN INDICATION
     Route: 048
     Dates: end: 20070202
  9. BUSPAR [Concomitant]
     Indication: DRUG USE FOR UNKNOWN INDICATION
     Route: 048
     Dates: end: 20070203
  10. HYDROXYZINE HYDROCHLORIDE [Concomitant]
     Indication: DRUG USE FOR UNKNOWN INDICATION
     Route: 048
     Dates: end: 20070203
  11. ABILIFY [Concomitant]
     Indication: DRUG USE FOR UNKNOWN INDICATION
     Dates: end: 20070203
  12. ATENOLOL [Concomitant]
     Indication: HYPERTENSION
     Dosage: LAST DOSE TAKEN AT 8AM
     Route: 048
     Dates: end: 20070204
  13. NORVASC [Concomitant]
     Indication: HYPERTENSION
     Dosage: LAST DOSE AT 8AM
     Route: 048
     Dates: end: 20070204
  14. ELAVIL [Concomitant]
     Indication: INSOMNIA
     Dosage: PATIENT TOOK HIS LAST DOSE AT 2AM
     Route: 048
     Dates: end: 20070204
  15. NARCAN [Concomitant]
     Indication: RESPIRATORY ARREST
     Route: 040
     Dates: start: 20070204, end: 20070204
  16. SODIUM BICARBONATE [Concomitant]
     Indication: CARDIAC ARREST
     Dosage: THREE DOSES GIVEN DURING RESUSCITATION EFFORTS
     Route: 040
     Dates: start: 20070204, end: 20070204
  17. ATROPINE [Concomitant]
     Indication: CARDIAC ARREST
     Dosage: THREE DOSES GIVEN DURING RESUSCITATION EFFORTS
     Route: 040
     Dates: start: 20070204, end: 20070204
  18. EPINEPHRINE [Concomitant]
     Indication: CARDIAC ARREST
     Dosage: THREE DOSES GIVEN DURING RESUSCITATION EFFORTS.
     Route: 040
     Dates: start: 20070204, end: 20070204

REACTIONS (5)
  - CONGESTIVE CARDIOMYOPATHY [None]
  - PULSE ABSENT [None]
  - RESPIRATORY ARREST [None]
  - SOMNOLENCE [None]
  - UNRESPONSIVE TO STIMULI [None]
